FAERS Safety Report 21371615 (Version 3)
Quarter: 2022Q4

REPORT INFORMATION
  Report Type: Report from Study
  Country: CN (occurrence: CN)
  Receive Date: 20220923
  Receipt Date: 20221004
  Transmission Date: 20230113
  Serious: Yes (Hospitalization)
  Sender: FDA-Public Use
  Company Number: CN-ELI_LILLY_AND_COMPANY-CN202203010755

PATIENT
  Age: 74 Year
  Sex: Female
  Weight: 50.5 kg

DRUGS (10)
  1. PEMETREXED [Suspect]
     Active Substance: PEMETREXED
     Indication: Non-small cell lung cancer metastatic
     Dosage: 500 MG/M2, CYCLICAL (EVERY THREE WEEKS)
     Route: 042
     Dates: start: 20210907, end: 20220218
  2. PEMETREXED [Suspect]
     Active Substance: PEMETREXED
     Dosage: 500 MG/M2, CYCLICAL (EVERY THREE WEEKS)
     Route: 042
     Dates: start: 20220322, end: 20220414
  3. PEMBROLIZUMAB [Concomitant]
     Active Substance: PEMBROLIZUMAB
     Indication: Non-small cell lung cancer metastatic
     Dosage: 200 MG, CYCLICAL (EVERY THREE WEEKS)
     Route: 042
     Dates: start: 20210907, end: 20220218
  4. PEMBROLIZUMAB [Concomitant]
     Active Substance: PEMBROLIZUMAB
     Dosage: 200 MG, CYCLICAL (EVERY THREE WEEKS)
     Route: 042
     Dates: start: 20220322, end: 20220414
  5. CARBOPLATIN [Concomitant]
     Active Substance: CARBOPLATIN
     Indication: Non-small cell lung cancer metastatic
     Dosage: AREA UNDER CURVE (AUC) 5MG/ML/MIN, CYCLICAL (Q3W)
     Route: 042
     Dates: start: 20210907, end: 20211117
  6. MINERALS\VITAMINS [Concomitant]
     Active Substance: MINERALS\VITAMINS
     Indication: Product used for unknown indication
     Dosage: 1 DOSAGE FORM, UNKNOWN
     Route: 065
     Dates: start: 20210818
  7. OXYCODONE HYDROCHLORIDE [Concomitant]
     Active Substance: OXYCODONE HYDROCHLORIDE
     Indication: Product used for unknown indication
     Dosage: 10 MG, UNKNOWN
     Route: 065
     Dates: start: 20210827
  8. PHOSPHOLIPID [Concomitant]
     Active Substance: PHOSPHOLIPID
     Indication: Product used for unknown indication
     Dosage: 1 DOSAGE FORM, UNKNOWN
     Route: 065
     Dates: start: 20220223, end: 20220301
  9. BICYCLOL [Concomitant]
     Active Substance: BICYCLOL
     Indication: Product used for unknown indication
     Dosage: 25 MG, UNKNOWN
     Dates: start: 20220223, end: 20220301
  10. FERRIC POLYSACCHARIDE COMPLEX [Concomitant]
     Active Substance: FERRIC POLYSACCHARIDE COMPLEX
     Indication: Product used for unknown indication
     Dosage: 0.15 G, UNKNOWN
     Dates: start: 20220223, end: 20220301

REACTIONS (1)
  - Fatigue [Not Recovered/Not Resolved]

NARRATIVE: CASE EVENT DATE: 20220316
